FAERS Safety Report 16577178 (Version 1)
Quarter: 2019Q3

REPORT INFORMATION
  Report Type: Spontaneous
  Country: US (occurrence: US)
  Receive Date: 20190715
  Receipt Date: 20190715
  Transmission Date: 20191004
  Serious: Yes (Hospitalization, Disabling)
  Sender: FDA-Public Use
  Company Number: None

PATIENT
  Age: 34 Year
  Sex: Female
  Weight: 70.2 kg

DRUGS (5)
  1. AMBIEN [Suspect]
     Active Substance: ZOLPIDEM TARTRATE
     Indication: INSOMNIA
     Route: 048
     Dates: start: 20140101, end: 20190214
  2. AMITRIPTYLINE [Concomitant]
     Active Substance: AMITRIPTYLINE
  3. SYNTHROID [Concomitant]
     Active Substance: LEVOTHYROXINE SODIUM
  4. ATIVAN [Concomitant]
     Active Substance: LORAZEPAM
  5. XYZAL [Concomitant]
     Active Substance: LEVOCETIRIZINE DIHYDROCHLORIDE

REACTIONS (11)
  - Post-traumatic stress disorder [None]
  - Urinary incontinence [None]
  - Psychotic disorder [None]
  - Substance-induced psychotic disorder [None]
  - Amnesia [None]
  - Victim of spousal abuse [None]
  - Mania [None]
  - Abnormal dreams [None]
  - Sleep deficit [None]
  - Chest pain [None]
  - Somnambulism [None]

NARRATIVE: CASE EVENT DATE: 20190124
